FAERS Safety Report 8272193-X (Version None)
Quarter: 2012Q2

REPORT INFORMATION
  Report Type: 
  Country: None (occurrence: None)
  Receive Date: 20120410
  Receipt Date: 20120401
  Transmission Date: 20120825
  Serious: Yes (Hospitalization)
  Sender: FDA-Public Use
  Company Number: US-ASTRAZENECA-2012SE21433

PATIENT
  Age: 27 Year
  Sex: Male

DRUGS (2)
  1. SEROQUEL XR [Suspect]
     Indication: BIPOLAR DISORDER
     Route: 048
  2. SEROQUEL XR [Suspect]
     Indication: BIPOLAR I DISORDER
     Route: 048

REACTIONS (6)
  - SOMNOLENCE [None]
  - ANXIETY [None]
  - FEELING DRUNK [None]
  - DIZZINESS [None]
  - INTENTIONAL DRUG MISUSE [None]
  - PANIC ATTACK [None]
